FAERS Safety Report 7254724-1 (Version None)
Quarter: 2011Q1

REPORT INFORMATION
  Report Type: 
  Country: None (occurrence: None)
  Receive Date: 20110129
  Receipt Date: 20100420
  Transmission Date: 20110831
  Serious: No
  Sender: FDA-Public Use
  Company Number: US-ABBOTT-10P-163-0639827-00

PATIENT
  Sex: Female
  Weight: 88.53 kg

DRUGS (4)
  1. PREDNISONE [Concomitant]
     Indication: PRODUCT USED FOR UNKNOWN INDICATION
  2. STEROID [Concomitant]
     Indication: PRODUCT USED FOR UNKNOWN INDICATION
  3. PREDNISONE [Concomitant]
     Dates: start: 20100301
  4. HUMIRA [Suspect]
     Indication: CROHN'S DISEASE
     Dates: start: 20100308

REACTIONS (1)
  - SWELLING FACE [None]
